FAERS Safety Report 4818061-4 (Version None)
Quarter: 2005Q4

REPORT INFORMATION
  Report Type: 
  Country: None (occurrence: None)
  Receive Date: 20051102
  Receipt Date: 20050823
  Transmission Date: 20060501
  Serious: Yes (Death, Other)
  Sender: FDA-Public Use
  Company Number: US-MERCK-0508USA03886

PATIENT
  Age: 77 Year
  Sex: Male
  Weight: 78 kg

DRUGS (12)
  1. VIOXX [Suspect]
     Indication: BACK PAIN
     Route: 048
     Dates: start: 20011101, end: 20040201
  2. DIOVAN [Concomitant]
     Route: 048
     Dates: start: 20010101, end: 20040201
  3. DOXAZOSIN MESYLATE [Concomitant]
     Route: 048
     Dates: start: 20010101, end: 20040201
  4. ASPIRIN [Concomitant]
     Route: 048
     Dates: start: 20010101, end: 20040201
  5. PLAVIX [Concomitant]
     Route: 048
     Dates: start: 20010101, end: 20040201
  6. ZOCOR [Concomitant]
     Route: 048
     Dates: start: 20010101, end: 20040201
  7. MAALOX PLUS [Concomitant]
     Route: 048
  8. KLONOPIN [Concomitant]
     Route: 048
  9. TRAZODONE HYDROCHLORIDE [Concomitant]
     Route: 048
  10. AMBIEN [Concomitant]
     Route: 048
  11. FOLIC ACID [Concomitant]
     Route: 048
  12. FERROUS SULFATE [Concomitant]
     Route: 048

REACTIONS (2)
  - DEATH [None]
  - MYOCARDIAL INFARCTION [None]
